FAERS Safety Report 19039564 (Version 2)
Quarter: 2021Q1

REPORT INFORMATION
  Report Type: Spontaneous
  Country: US (occurrence: US)
  Receive Date: 20210322
  Receipt Date: 20210331
  Transmission Date: 20210420
  Serious: Yes (Hospitalization, Other)
  Sender: FDA-Public Use
  Company Number: US-VERTEX PHARMACEUTICALS-2021-004397

PATIENT
  Age: 22 Year
  Sex: Male

DRUGS (17)
  1. CREON [Concomitant]
     Active Substance: PANCRELIPASE AMYLASE\PANCRELIPASE LIPASE\PANCRELIPASE PROTEASE
     Dosage: 36K
  2. ASPARTAM [Concomitant]
     Active Substance: ASPARTAME
     Dosage: 1?15 UNITS, TID
  3. PANTOPRAZOLE [Concomitant]
     Active Substance: PANTOPRAZOLE
     Dosage: UNK, BID
  4. ALBUTEROL [SALBUTAMOL] [Concomitant]
     Active Substance: ALBUTEROL
     Dosage: Q6H, PRN
  5. FERROUS SULFATE. [Concomitant]
     Active Substance: FERROUS SULFATE
     Dosage: EVERY OTHER DAY
  6. SINGULAIR [Concomitant]
     Active Substance: MONTELUKAST SODIUM
  7. TRIKAFTA [Suspect]
     Active Substance: ELEXACAFTOR\IVACAFTOR\TEZACAFTOR
     Indication: CYSTIC FIBROSIS
     Dosage: 2 TABS (100 MG ELEXACAFTOR/50 MG TEZACAFTOR/75 MG IVACAFTOR) AM; 1 TAB (150 MG IVACAFTOR) PM
     Route: 048
     Dates: start: 20191108, end: 20201217
  8. VITAMIN C [Concomitant]
     Active Substance: ASCORBIC ACID
     Dosage: EVERY OTHER DAY
  9. CAYSTON [Concomitant]
     Active Substance: AZTREONAM
     Dosage: 75 MG, TID
  10. TOBI [Concomitant]
     Active Substance: TOBRAMYCIN
  11. HYPERTONIC SALINE SOLUTION [Concomitant]
     Active Substance: SODIUM CHLORIDE
     Dosage: UNK, BID
     Route: 055
  12. TRIKAFTA [Suspect]
     Active Substance: ELEXACAFTOR\IVACAFTOR\TEZACAFTOR
     Dosage: TWO MORNING PILLS
     Route: 048
     Dates: start: 20210223
  13. URSODIOL. [Concomitant]
     Active Substance: URSODIOL
     Dosage: (600 MG) AM; (300 MG) BED TIME
  14. PULMOZYME [Concomitant]
     Active Substance: DORNASE ALFA
     Dosage: UNK, BID
  15. AZITHROMYCIN ANHYDROUS. [Concomitant]
     Active Substance: AZITHROMYCIN ANHYDROUS
     Dosage: 500 MG, M, W, F
  16. PULMICORT TURBUHALER [Concomitant]
     Active Substance: BUDESONIDE
     Dosage: UNK, QD
     Route: 045
  17. CEROVITE [Concomitant]
     Active Substance: FOLIC ACID\IRON
     Dosage: 1 DOSAGE FORM

REACTIONS (5)
  - Cholelithiasis [Recovered/Resolved]
  - Cholecystitis chronic [Recovered/Resolved]
  - Infective pulmonary exacerbation of cystic fibrosis [Recovered/Resolved]
  - Hyperbilirubinaemia [Recovered/Resolved]
  - Cholestasis [Recovered/Resolved]

NARRATIVE: CASE EVENT DATE: 20201228
